FAERS Safety Report 24383413 (Version 1)
Quarter: 2024Q4

REPORT INFORMATION
  Report Type: Spontaneous
  Country: US (occurrence: US)
  Receive Date: 20241001
  Receipt Date: 20241001
  Transmission Date: 20250114
  Serious: Yes (Other)
  Sender: PFIZER
  Company Number: US-PFIZER INC-202400265812

PATIENT
  Age: 66 Year
  Sex: Male

DRUGS (5)
  1. INLYTA [Suspect]
     Active Substance: AXITINIB
     Dosage: 7 MG (1 TAB OF 5 MG AND 1 TAB OF 2 MG), 2X/DAY
     Route: 048
     Dates: start: 20140428
  2. INLYTA [Suspect]
     Active Substance: AXITINIB
     Dosage: 7 MG (1 TAB OF 5 MG AND 1 TAB OF  2 MG), 2X/DAY
     Route: 048
  3. VITAMIN D NOS [Concomitant]
     Active Substance: CHOLECALCIFEROL\ERGOCALCIFEROL
     Dosage: UNK
  4. VITAMIN B12 [Concomitant]
     Active Substance: CYANOCOBALAMIN
     Dosage: UNK
  5. ZYRTEC [Concomitant]
     Active Substance: CETIRIZINE HYDROCHLORIDE
     Dosage: UNK

REACTIONS (1)
  - Back disorder [Unknown]
